FAERS Safety Report 9250581 (Version 1)
Quarter: 2013Q1

REPORT INFORMATION
  Report Type: Spontaneous
  Country: US (occurrence: None)
  Receive Date: 20130305
  Receipt Date: 20130305
  Transmission Date: 20140127
  Serious: Yes (Other)
  Sender: FDA-Public Use
  Company Number: 163-21880-12081666

PATIENT
  Sex: Male

DRUGS (7)
  1. REVLIMID (LENALIDOMIDE) [Suspect]
     Indication: PLASMA CELL MYELOMA
     Dosage: 25MG, 1 IN 1 D, PO
     Route: 048
     Dates: start: 201107, end: 2011
  2. ASPIRIN (ACETYLSALICYLIC ACID) [Concomitant]
  3. IPRATROPIUM (IPRATROPIUM) [Concomitant]
  4. VALACYCLOVIR (VALACICLOVIR HYDROCHLORIDE) [Concomitant]
  5. DEXAMETHASONE (DEXAMETHASONE) [Concomitant]
  6. AZELASTINE (AZELASTINE) [Concomitant]
  7. VELCADE (BORTEZOMIB) [Concomitant]

REACTIONS (1)
  - Contusion [None]
